FAERS Safety Report 16094750 (Version 1)
Quarter: 2019Q1

REPORT INFORMATION
  Report Type: Spontaneous
  Country: US (occurrence: US)
  Receive Date: 20190320
  Receipt Date: 20190320
  Transmission Date: 20190418
  Serious: Yes (Hospitalization)
  Sender: FDA-Public Use
  Company Number: US-ACCORD-095544

PATIENT
  Age: 55 Year
  Sex: Male

DRUGS (1)
  1. MYCOPHENOLATE MOFETIL/MYCOPHENOLATE SODIUM/MYCOPHENOLIC ACID [Suspect]
     Active Substance: MYCOPHENOLIC ACID
     Indication: RENAL TRANSPLANT
     Dosage: STRENGTH: 360MG
     Route: 048
     Dates: start: 20180611, end: 201807

REACTIONS (4)
  - White blood cell count decreased [Recovering/Resolving]
  - Malaise [Recovering/Resolving]
  - Product formulation issue [Unknown]
  - Product substitution issue [Unknown]

NARRATIVE: CASE EVENT DATE: 201807
